FAERS Safety Report 4642622-9 (Version None)
Quarter: 2005Q2

REPORT INFORMATION
  Report Type: 
  Country: None (occurrence: None)
  Receive Date: 20050420
  Receipt Date: 20050408
  Transmission Date: 20051028
  Serious: Yes (Death)
  Sender: FDA-Public Use
  Company Number: HQWYE060311MAR05

PATIENT
  Age: 61 Year
  Sex: Male

DRUGS (5)
  1. PANTOPRAZOLE SODIUM [Suspect]
     Indication: GASTROOESOPHAGEAL REFLUX DISEASE
     Dosage: 40 MG 1X PER 1 DAY, ORAL
     Route: 048
     Dates: start: 20040420, end: 20040520
  2. UNSPECIFIED ANTINEOPLASTIC AGENT (UNSPECIFIED ANTINEOPLASTIC AGENT) [Concomitant]
  3. MEDROL [Concomitant]
  4. BUMETANIDE [Concomitant]
  5. SERETIDE (SALMETEROL/FLUTICASONE) [Concomitant]

REACTIONS (5)
  - CARDIAC FAILURE [None]
  - CONCOMITANT DISEASE PROGRESSION [None]
  - LUNG CANCER METASTATIC [None]
  - MALIGNANT NEOPLASM PROGRESSION [None]
  - PULMONARY OEDEMA [None]
